FAERS Safety Report 15563638 (Version 1)
Quarter: 2018Q4

REPORT INFORMATION
  Report Type: Spontaneous
  Country: US (occurrence: US)
  Receive Date: 20181029
  Receipt Date: 20181029
  Transmission Date: 20190205
  Serious: No
  Sender: FDA-Public Use
  Company Number: US-SA-2018SA296337

PATIENT
  Age: 73 Year
  Sex: Female

DRUGS (1)
  1. BISACODYL. [Suspect]
     Active Substance: BISACODYL
     Dosage: UNK UNK, UNK
     Route: 065

REACTIONS (3)
  - Abdominal distension [Unknown]
  - Headache [Unknown]
  - Tinnitus [Unknown]
